FAERS Safety Report 8996133 (Version 1)
Quarter: 2013Q1

REPORT INFORMATION
  Report Type: Spontaneous
  Country: US (occurrence: US)
  Receive Date: 20130103
  Receipt Date: 20130103
  Transmission Date: 20140127
  Serious: No
  Sender: FDA-Public Use
  Company Number: US-ABBOTT-12P-163-0944738-00

PATIENT
  Sex: Female
  Weight: 81.72 kg

DRUGS (6)
  1. SYNTHROID [Suspect]
     Indication: HYPOTHYROIDISM
     Dates: start: 1980
  2. SYNTHROID [Suspect]
     Dates: end: 201203
  3. SYNTHROID [Suspect]
     Indication: HYPOTHYROIDISM
     Dates: start: 201203
  4. SYNTHROID [Suspect]
  5. CYTOMEL [Concomitant]
     Indication: HYPOTHYROIDISM
  6. HYDROCHLOROTHIAZIDE [Concomitant]
     Indication: HYPERTENSION

REACTIONS (6)
  - Cough [Not Recovered/Not Resolved]
  - Chest discomfort [Not Recovered/Not Resolved]
  - Reaction to azo-dyes [Not Recovered/Not Resolved]
  - Fatigue [Recovered/Resolved]
  - Blood thyroid stimulating hormone increased [Recovered/Resolved]
  - Pruritus [Not Recovered/Not Resolved]
